FAERS Safety Report 18792768 (Version 2)
Quarter: 2021Q1

REPORT INFORMATION
  Report Type: Spontaneous
  Country: JP (occurrence: JP)
  Receive Date: 20210127
  Receipt Date: 20210323
  Transmission Date: 20210419
  Serious: Yes (Hospitalization, Other)
  Sender: FDA-Public Use
  Company Number: JP-ASTELLAS-2020JP020905

PATIENT
  Age: 65 Year
  Sex: Female

DRUGS (1)
  1. GRACEPTOR [Suspect]
     Active Substance: TACROLIMUS
     Indication: RENAL TRANSPLANT
     Dosage: 1.5 MG/DAY, UNKNOWN FREQ.
     Route: 048

REACTIONS (3)
  - Fracture [Unknown]
  - Impaired healing [Recovering/Resolving]
  - Fall [Recovered/Resolved]
